FAERS Safety Report 11021552 (Version 3)
Quarter: 2015Q2

REPORT INFORMATION
  Report Type: Spontaneous
  Country: JP (occurrence: JP)
  Receive Date: 20150413
  Receipt Date: 20150508
  Transmission Date: 20150821
  Serious: Yes (Hospitalization)
  Sender: FDA-Public Use
  Company Number: JP-BAYER-2015-114498

PATIENT
  Age: 90 Year
  Sex: Female
  Weight: 39 kg

DRUGS (5)
  1. BAYASPIRIN [Suspect]
     Active Substance: ASPIRIN
     Indication: ANTIPLATELET THERAPY
     Dosage: 100 MG, QD
     Route: 048
     Dates: end: 2013
  2. WARFARIN POTASSIUM [Suspect]
     Active Substance: WARFARIN POTASSIUM
     Indication: THROMBOSIS PROPHYLAXIS
  3. CLOPIDOGREL SULFATE [Suspect]
     Active Substance: CLOPIDOGREL BISULFATE
     Indication: ANTIPLATELET THERAPY
     Dosage: DAILY DOSE 75 MG
     Route: 048
     Dates: start: 2013, end: 2013
  4. CLOPIDOGREL SULFATE [Suspect]
     Active Substance: CLOPIDOGREL BISULFATE
     Indication: ANTIPLATELET THERAPY
     Dosage: DAILY DOSE 300 MG
     Route: 048
     Dates: end: 2013
  5. WARFARIN POTASSIUM [Suspect]
     Active Substance: WARFARIN POTASSIUM
     Indication: ATRIAL FIBRILLATION
     Dosage: UNK
     Route: 048
     Dates: end: 2013

REACTIONS (5)
  - Puncture site haemorrhage [None]
  - Vascular pseudoaneurysm ruptured [Recovered/Resolved]
  - Labelled drug-drug interaction medication error [None]
  - Vascular pseudoaneurysm [Recovered/Resolved]
  - Subcutaneous haematoma [None]

NARRATIVE: CASE EVENT DATE: 201307
